FAERS Safety Report 21160934 (Version 4)
Quarter: 2023Q1

REPORT INFORMATION
  Report Type: Report from Study
  Country: US (occurrence: US)
  Receive Date: 20220802
  Receipt Date: 20230309
  Transmission Date: 20230417
  Serious: Yes (Other)
  Sender: FDA-Public Use
  Company Number: US-BIOVITRUM-2022US07182

PATIENT
  Age: 69 Year
  Sex: Female

DRUGS (2)
  1. KINERET [Suspect]
     Active Substance: ANAKINRA
     Indication: Rheumatoid arthritis
     Route: 058
     Dates: start: 20200408
  2. KINERET [Suspect]
     Active Substance: ANAKINRA
     Route: 058
     Dates: start: 20200808

REACTIONS (17)
  - Hypogammaglobulinaemia [Unknown]
  - Product dose omission in error [Unknown]
  - Feeling abnormal [Unknown]
  - Musculoskeletal stiffness [Unknown]
  - Depression [Unknown]
  - Loss of personal independence in daily activities [Unknown]
  - Pain [Unknown]
  - COVID-19 [Unknown]
  - White blood cell count decreased [Unknown]
  - Fatigue [Unknown]
  - Hypersomnia [Unknown]
  - Rhinorrhoea [Unknown]
  - Chills [Unknown]
  - Cough [Unknown]
  - Oral pain [Unknown]
  - Herpes zoster [Unknown]
  - Seasonal affective disorder [Unknown]
